FAERS Safety Report 4534240-8 (Version None)
Quarter: 2004Q4

REPORT INFORMATION
  Report Type: 
  Country: None (occurrence: None)
  Receive Date: 20041222
  Receipt Date: 20041215
  Transmission Date: 20050328
  Serious: Yes (Other)
  Sender: FDA-Public Use
  Company Number: US-BRISTOL-MYERS SQUIBB COMPANY-12797585

PATIENT
  Age: 51 Year
  Sex: Female
  Weight: 64 kg

DRUGS (8)
  1. ERBITUX [Suspect]
     Indication: RECTAL CANCER METASTATIC
     Dosage: LOADING DOSE, 400 PER METER SQUARED
     Route: 042
     Dates: start: 20041202, end: 20041202
  2. BENADRYL [Concomitant]
     Indication: PREMEDICATION
     Route: 042
     Dates: start: 20041202, end: 20041202
  3. AVASTIN [Concomitant]
     Dates: start: 20041104, end: 20041104
  4. CAMPTOSAR [Concomitant]
     Dosage: 180/M2 (300 MG)
     Dates: start: 20041130, end: 20041130
  5. ZOFRAN [Concomitant]
  6. LOMOTIL [Concomitant]
  7. ATIVAN [Concomitant]
  8. VICODIN [Concomitant]

REACTIONS (5)
  - HEADACHE [None]
  - NAUSEA [None]
  - PYREXIA [None]
  - RECTAL HAEMORRHAGE [None]
  - VOMITING [None]
